FAERS Safety Report 8795087 (Version 2)
Quarter: 2015Q2

REPORT INFORMATION
  Report Type: Report from Study
  Country: US (occurrence: US)
  Receive Date: 20120917
  Receipt Date: 20150507
  Transmission Date: 20150821
  Serious: Yes (Death, Hospitalization, Other)
  Sender: FDA-Public Use
  Company Number: US-ROCHE-1128717

PATIENT
  Sex: Female

DRUGS (35)
  1. ROCEPHIN [Concomitant]
     Active Substance: CEFTRIAXONE SODIUM
     Route: 065
  2. TAXOTERE [Concomitant]
     Active Substance: DOCETAXEL
     Route: 065
  3. ARANESP [Concomitant]
     Active Substance: DARBEPOETIN ALFA
     Indication: ANAEMIA
     Route: 065
  4. LANOXIN [Concomitant]
     Active Substance: DIGOXIN
     Dosage: MONDAY WEDNESDAY FRIDAY
     Route: 048
  5. LISINOPRIL. [Concomitant]
     Active Substance: LISINOPRIL
     Route: 048
  6. HYDROCORTISONE. [Concomitant]
     Active Substance: HYDROCORTISONE
     Route: 061
  7. HERCEPTIN [Suspect]
     Active Substance: TRASTUZUMAB
     Indication: PRODUCT USED FOR UNKNOWN INDICATION
     Route: 065
  8. ADVIL [Concomitant]
     Active Substance: IBUPROFEN
     Indication: PAIN
     Route: 065
  9. CARBOPLATIN. [Concomitant]
     Active Substance: CARBOPLATIN
  10. LASIX [Concomitant]
     Active Substance: FUROSEMIDE
     Route: 065
  11. PRILOSEC [Concomitant]
     Active Substance: OMEPRAZOLE MAGNESIUM
     Route: 065
  12. NAVELBINE [Concomitant]
     Active Substance: VINORELBINE TARTRATE
  13. GEMZAR [Concomitant]
     Active Substance: GEMCITABINE HYDROCHLORIDE
     Route: 065
  14. PROCRIT [Concomitant]
     Active Substance: ERYTHROPOIETIN
  15. HCTZ [Concomitant]
     Active Substance: HYDROCHLOROTHIAZIDE
  16. EPIRUBICIN [Concomitant]
     Active Substance: EPIRUBICIN
     Route: 065
  17. XELODA [Suspect]
     Active Substance: CAPECITABINE
     Indication: PRODUCT USED FOR UNKNOWN INDICATION
     Dosage: 8 TABLETS A DAY FOR 14 DAYS?THERAPY DATE: 10/OCT/2003, 30/OCT/2003
     Route: 048
  18. ARANESP [Concomitant]
     Active Substance: DARBEPOETIN ALFA
     Route: 065
  19. FUROSEMIDE. [Concomitant]
     Active Substance: FUROSEMIDE
     Route: 065
  20. GEMZAR [Concomitant]
     Active Substance: GEMCITABINE HYDROCHLORIDE
     Route: 065
  21. VICODIN [Concomitant]
     Active Substance: ACETAMINOPHEN\HYDROCODONE BITARTRATE
     Dosage: AS NEEDED
     Route: 048
  22. AVASTIN [Suspect]
     Active Substance: BEVACIZUMAB
     Indication: MALIGNANT RESPIRATORY TRACT NEOPLASM
     Route: 042
  23. DIGOXIN. [Concomitant]
     Active Substance: DIGOXIN
     Route: 048
  24. LASIX [Concomitant]
     Active Substance: FUROSEMIDE
     Route: 048
  25. MEGACE [Concomitant]
     Active Substance: MEGESTROL ACETATE
  26. GEMZAR [Concomitant]
     Active Substance: GEMCITABINE HYDROCHLORIDE
     Route: 065
  27. XANAX [Concomitant]
     Active Substance: ALPRAZOLAM
     Dosage: AS NEEDED
     Route: 048
  28. K-DUR [Concomitant]
     Active Substance: POTASSIUM CHLORIDE
     Route: 048
  29. LOPRESSOR [Concomitant]
     Active Substance: METOPROLOL TARTRATE
  30. ARIMIDEX [Concomitant]
     Active Substance: ANASTROZOLE
     Route: 048
  31. ALDACTONE (UNITED STATES) [Concomitant]
     Route: 048
  32. ADRIAMYCIN [Concomitant]
     Active Substance: DOXORUBICIN HYDROCHLORIDE
     Route: 065
  33. TAXOL [Concomitant]
     Active Substance: PACLITAXEL
  34. AROMASIN [Concomitant]
     Active Substance: EXEMESTANE
     Route: 065
  35. OXYGEN. [Concomitant]
     Active Substance: OXYGEN

REACTIONS (47)
  - Fluid retention [Unknown]
  - Cardiac failure congestive [Unknown]
  - Pallor [Unknown]
  - Pericardial effusion [Unknown]
  - Vomiting [Unknown]
  - Ejection fraction decreased [Recovering/Resolving]
  - Pyuria [Unknown]
  - Abdominal distension [Unknown]
  - Dyspnoea [Unknown]
  - Face oedema [Unknown]
  - Breath sounds abnormal [Unknown]
  - Pyrexia [Unknown]
  - Peripheral swelling [Unknown]
  - Hypertension [Unknown]
  - Breast cancer metastatic [Unknown]
  - Urinary tract infection [Unknown]
  - Disease progression [Unknown]
  - Nausea [Unknown]
  - Fatigue [Unknown]
  - Anaemia [Unknown]
  - Weight decreased [Unknown]
  - Proteinuria [Unknown]
  - Myalgia [Unknown]
  - Diarrhoea [Unknown]
  - Lymphoedema [Recovered/Resolved]
  - Ascites [Unknown]
  - Hyperkalaemia [Unknown]
  - Gastritis [Unknown]
  - Vasodilatation [Unknown]
  - Dyspepsia [Unknown]
  - Acute kidney injury [Unknown]
  - Abdominal pain upper [Unknown]
  - Death [Fatal]
  - Renal failure [Unknown]
  - Hydronephrosis [Unknown]
  - Generalised oedema [Unknown]
  - Dehydration [Unknown]
  - Acute prerenal failure [Unknown]
  - Dysgeusia [Unknown]
  - Skin lesion [Unknown]
  - Constipation [Recovered/Resolved]
  - Vaginal haemorrhage [Unknown]
  - Pulmonary hypertension [Unknown]
  - Eye swelling [Unknown]
  - Decreased appetite [Unknown]
  - Tumour invasion [Unknown]
  - Arthralgia [Unknown]
